FAERS Safety Report 22953751 (Version 2)
Quarter: 2023Q4

REPORT INFORMATION
  Report Type: Report from Study
  Country: FR (occurrence: FR)
  Receive Date: 20230918
  Receipt Date: 20231002
  Transmission Date: 20240110
  Serious: Yes (Hospitalization, Other)
  Sender: FDA-Public Use
  Company Number: FR-DAIICHI SANKYO, INC.-DSE-2023-138129AA

PATIENT
  Sex: Female
  Weight: 74 kg

DRUGS (4)
  1. ENHERTU [Suspect]
     Active Substance: FAM-TRASTUZUMAB DERUXTECAN-NXKI
     Indication: Breast cancer metastatic
     Dosage: 5.4 MG/KG, CYCLIC
     Route: 065
     Dates: start: 20230725, end: 20230725
  2. ENHERTU [Suspect]
     Active Substance: FAM-TRASTUZUMAB DERUXTECAN-NXKI
     Indication: HER2 negative breast cancer
     Dosage: 4.4 MG/KG, CYCLIC
     Route: 065
     Dates: start: 20230817, end: 20230817
  3. ENHERTU [Suspect]
     Active Substance: FAM-TRASTUZUMAB DERUXTECAN-NXKI
     Dosage: 4.4 MG/KG, CYCLIC, (CYCLE 3)
     Route: 065
  4. UNSPECIFIED INGREDIENT [Concomitant]
     Active Substance: UNSPECIFIED INGREDIENT
     Indication: Antiemetic supportive care
     Dosage: UNK
     Route: 065

REACTIONS (19)
  - Gastrointestinal toxicity [Unknown]
  - Hypertension [Unknown]
  - Heart rate increased [Unknown]
  - Muscular weakness [Unknown]
  - Breath sounds abnormal [Unknown]
  - Toxic skin eruption [Recovered/Resolved]
  - Hypomagnesaemia [Unknown]
  - Motor dysfunction [Unknown]
  - Sensory loss [Unknown]
  - Fall [Unknown]
  - Weight decreased [Unknown]
  - Diarrhoea [Unknown]
  - Dehydration [Unknown]
  - Vomiting [Unknown]
  - Nausea [Unknown]
  - Asthenia [Unknown]
  - Constipation [Unknown]
  - Nausea [Recovering/Resolving]
  - Intentional product use issue [Not Recovered/Not Resolved]

NARRATIVE: CASE EVENT DATE: 20230817
